FAERS Safety Report 16751648 (Version 1)
Quarter: 2019Q3

REPORT INFORMATION
  Report Type: Spontaneous
  Country: US (occurrence: US)
  Receive Date: 20190828
  Receipt Date: 20190828
  Transmission Date: 20191005
  Serious: Yes (Hospitalization, Other)
  Sender: FDA-Public Use
  Company Number: US-ASTRAZENECA-2019SF19970

PATIENT
  Age: 71 Year
  Sex: Female
  Weight: 52.2 kg

DRUGS (3)
  1. FASLODEX [Suspect]
     Active Substance: FULVESTRANT
     Indication: BREAST CANCER METASTATIC
     Route: 030
  2. IBRANCE [Suspect]
     Active Substance: PALBOCICLIB
     Indication: BREAST CANCER METASTATIC
     Dosage: FOR 21 DAYS OFF FOR 7 DAYS
     Route: 048
     Dates: start: 20190606
  3. IBRANCE [Suspect]
     Active Substance: PALBOCICLIB
     Indication: BREAST CANCER METASTATIC
     Dosage: FOR 21 DAYS OFF FOR 7 DAYS
     Route: 048

REACTIONS (5)
  - Neck mass [Unknown]
  - Abscess intestinal [Unknown]
  - Intestinal obstruction [Unknown]
  - Blood count abnormal [Unknown]
  - Fistula [Unknown]
